FAERS Safety Report 17110630 (Version 1)
Quarter: 2019Q4

REPORT INFORMATION
  Report Type: Spontaneous
  Country: US (occurrence: US)
  Receive Date: 20191204
  Receipt Date: 20191204
  Transmission Date: 20200122
  Serious: No
  Sender: FDA-Public Use
  Company Number: US-PFIZER INC-2019522662

PATIENT
  Age: 73 Year
  Sex: Female

DRUGS (2)
  1. PREMARIN [Suspect]
     Active Substance: ESTROGENS, CONJUGATED
     Indication: VULVOVAGINAL DRYNESS
  2. PREMARIN [Suspect]
     Active Substance: ESTROGENS, CONJUGATED
     Indication: ATROPHIC VULVOVAGINITIS
     Dosage: 1 G, 2X/WEEK
     Route: 067

REACTIONS (5)
  - Off label use [Unknown]
  - Vulvovaginal discomfort [Unknown]
  - Product use issue [Unknown]
  - Poor quality product administered [Unknown]
  - Product complaint [Unknown]

NARRATIVE: CASE EVENT DATE: 20191201
